FAERS Safety Report 8223791-0 (Version None)
Quarter: 2012Q1

REPORT INFORMATION
  Report Type: 
  Country: None (occurrence: None)
  Receive Date: 20120321
  Receipt Date: 20120321
  Transmission Date: 20120608
  Serious: Yes (Other)
  Sender: FDA-Public Use
  Company Number: None

PATIENT
  Age: 54 Year
  Sex: Male
  Weight: 859.1 kg

DRUGS (4)
  1. MEROPENEM [Suspect]
     Indication: LUNG INFECTION
     Dosage: 1 GRAM
     Route: 042
     Dates: start: 20120209, end: 20120313
  2. MEROPENEM [Suspect]
     Indication: RHODOCOCCUS INFECTION
     Dosage: 1 GRAM
     Route: 042
     Dates: start: 20120209, end: 20120313
  3. SODIUM CHLORIDE [Concomitant]
     Indication: MEDICATION DILUTION
     Dosage: 50 ML
     Route: 042
     Dates: start: 20120209, end: 20120313
  4. MEROPENEM [Suspect]

REACTIONS (2)
  - WHITE BLOOD CELL COUNT DECREASED [None]
  - NEUTROPHIL COUNT DECREASED [None]
